FAERS Safety Report 10693853 (Version 1)
Quarter: 2015Q1

REPORT INFORMATION
  Report Type: Spontaneous
  Country: US (occurrence: US)
  Receive Date: 20150106
  Receipt Date: 20150106
  Transmission Date: 20150721
  Serious: No
  Sender: FDA-Public Use
  Company Number: US-GLAXOSMITHKLINE-US2014GSK020473

PATIENT
  Age: 35 Year
  Sex: Female

DRUGS (1)
  1. MEPRON [Suspect]
     Active Substance: ATOVAQUONE
     Indication: BABESIOSIS
     Route: 048
     Dates: start: 20141017, end: 20141031

REACTIONS (9)
  - Xanthopsia [Not Recovered/Not Resolved]
  - Tremor [Recovering/Resolving]
  - Sinusitis [Recovering/Resolving]
  - Insomnia [Recovering/Resolving]
  - Sinus headache [Recovering/Resolving]
  - Glare [Not Recovered/Not Resolved]
  - Thinking abnormal [Recovering/Resolving]
  - Chills [Recovered/Resolved]
  - Abnormal behaviour [Recovering/Resolving]

NARRATIVE: CASE EVENT DATE: 20141027
